FAERS Safety Report 8977758 (Version 2)
Quarter: 2012Q4

REPORT INFORMATION
  Report Type: 
  Country: IT (occurrence: IT)
  Receive Date: 20121220
  Receipt Date: 20121228
  Transmission Date: 20130627
  Serious: Yes (Hospitalization)
  Sender: FDA-Public Use
  Company Number: IT-EISAI INC-E7389-03365-SPO-IT

PATIENT
  Age: 64 Year
  Sex: Female

DRUGS (4)
  1. HALAVEN [Suspect]
     Indication: BREAST CARCINOMA
     Route: 041
     Dates: start: 20121004, end: 20121011
  2. LANSOPRAZOLE [Concomitant]
     Route: 048
  3. DEXAMETHASONE [Concomitant]
     Route: 048
  4. OXICODONE [Concomitant]
     Route: 048

REACTIONS (4)
  - Bronchopulmonary disease [Recovered/Resolved]
  - Febrile neutropenia [Recovered/Resolved]
  - Anaemia [Recovered/Resolved]
  - Diarrhoea [Recovered/Resolved]
